FAERS Safety Report 8496484-2 (Version None)
Quarter: 2012Q3

REPORT INFORMATION
  Report Type: 
  Country: None (occurrence: None)
  Receive Date: 20120709
  Receipt Date: 20120629
  Transmission Date: 20120928
  Serious: Yes (Death, Other)
  Sender: FDA-Public Use
  Company Number: DE-MPIJNJ-2012-04245

PATIENT

DRUGS (8)
  1. LENALIDOMIDE [Suspect]
     Indication: MULTIPLE MYELOMA
  2. LENALIDOMIDE [Suspect]
     Indication: NON-SMALL CELL LUNG CANCER
  3. VELCADE [Suspect]
     Indication: MULTIPLE MYELOMA
  4. MELPHALAN HYDROCHLORIDE [Suspect]
     Indication: MULTIPLE MYELOMA
     Dosage: 200 MG/M2, CYCLIC
  5. MELPHALAN HYDROCHLORIDE [Suspect]
     Indication: NON-SMALL CELL LUNG CANCER
  6. THALIDOMIDE [Suspect]
     Indication: NON-SMALL CELL LUNG CANCER
  7. VELCADE [Suspect]
     Indication: NON-SMALL CELL LUNG CANCER
  8. THALIDOMIDE [Suspect]
     Indication: MULTIPLE MYELOMA

REACTIONS (2)
  - NON-SMALL CELL LUNG CANCER [None]
  - NEOPLASM MALIGNANT [None]
